FAERS Safety Report 18724900 (Version 1)
Quarter: 2021Q1

REPORT INFORMATION
  Report Type: Spontaneous
  Country: US (occurrence: US)
  Receive Date: 20210111
  Receipt Date: 20210111
  Transmission Date: 20210419
  Serious: Yes (Death, Hospitalization, Other)
  Sender: FDA-Public Use
  Company Number: US-IPCA LABORATORIES LIMITED-IPC-2021-US-000009

PATIENT

DRUGS (1)
  1. WARFARIN [Suspect]
     Active Substance: WARFARIN
     Indication: ANTICOAGULANT THERAPY
     Dosage: UNK
     Route: 065

REACTIONS (6)
  - International normalised ratio increased [Fatal]
  - Hypovolaemic shock [Fatal]
  - Upper gastrointestinal haemorrhage [Fatal]
  - Blood loss anaemia [Fatal]
  - Gastric fistula [Fatal]
  - Respiratory failure [Fatal]
